FAERS Safety Report 10921162 (Version 1)
Quarter: 2015Q1

REPORT INFORMATION
  Report Type: Spontaneous
  Country: US (occurrence: None)
  Receive Date: 20150313
  Receipt Date: 20150313
  Transmission Date: 20150721
  Serious: Yes (Hospitalization)
  Sender: FDA-Public Use
  Company Number: None

PATIENT
  Age: 70 Year
  Sex: Female
  Weight: 68 kg

DRUGS (1)
  1. DIPHENHYDRAMINE HYDROCHLORIDE. [Suspect]
     Active Substance: DIPHENHYDRAMINE HYDROCHLORIDE
     Dosage: TOTAL DOSE ADMINISTERED 120 M
     Dates: end: 20141130

REACTIONS (4)
  - Dehydration [None]
  - Pain [None]
  - Dysphagia [None]
  - Discomfort [None]

NARRATIVE: CASE EVENT DATE: 20140101
